FAERS Safety Report 10985110 (Version 1)
Quarter: 2015Q2

REPORT INFORMATION
  Report Type: Spontaneous
  Country: PL (occurrence: PL)
  Receive Date: 20150404
  Receipt Date: 20150404
  Transmission Date: 20150821
  Serious: Yes (Hospitalization)
  Sender: FDA-Public Use
  Company Number: PHHY2015PL037154

PATIENT
  Age: 56 Year
  Sex: Male

DRUGS (6)
  1. QUETIAPINE [Suspect]
     Active Substance: QUETIAPINE
     Indication: DEPRESSIVE SYMPTOM
     Dosage: 100 MG, QD
     Route: 065
  2. INDAPAMIDE. [Concomitant]
     Active Substance: INDAPAMIDE
     Indication: HYPERTENSION
     Route: 065
  3. VALSARTAN. [Concomitant]
     Active Substance: VALSARTAN
     Indication: HYPERTENSION
     Route: 065
  4. QUETIAPINE [Suspect]
     Active Substance: QUETIAPINE
     Dosage: UNK
  5. QUETIAPINE [Suspect]
     Active Substance: QUETIAPINE
     Dosage: 175 MG, QD
     Route: 065
  6. VALPROIC ACID. [Concomitant]
     Active Substance: VALPROIC ACID
     Indication: BIPOLAR DISORDER
     Route: 065

REACTIONS (4)
  - Myoglobin blood increased [Recovered/Resolved]
  - Aspartate aminotransferase [Recovered/Resolved]
  - Hyponatraemia [Recovered/Resolved]
  - Blood creatine phosphokinase increased [Recovered/Resolved]
